FAERS Safety Report 6991472-7 (Version None)
Quarter: 2010Q3

REPORT INFORMATION
  Report Type: 
  Country: None (occurrence: None)
  Receive Date: 20100916
  Receipt Date: 20090827
  Transmission Date: 20110219
  Serious: No
  Sender: FDA-Public Use
  Company Number: US-WYE-H10748409

PATIENT
  Sex: Female
  Weight: 63.56 kg

DRUGS (10)
  1. PRISTIQ [Suspect]
     Indication: DEPRESSION
     Route: 048
     Dates: start: 20090827, end: 20090827
  2. SIMVASTATIN [Concomitant]
  3. METFORMIN [Concomitant]
  4. CALCIUM [Concomitant]
  5. OMEPRAZOLE [Concomitant]
  6. MAGNESIUM [Concomitant]
  7. ERGOCALCIFEROL [Concomitant]
  8. VITAMIN B [Concomitant]
  9. VERAPAMIL [Concomitant]
  10. TRAMADOL [Concomitant]

REACTIONS (2)
  - NAUSEA [None]
  - VOMITING [None]
